FAERS Safety Report 9539019 (Version 3)
Quarter: 2013Q4

REPORT INFORMATION
  Report Type: Spontaneous
  Country: IT (occurrence: IT)
  Receive Date: 20130920
  Receipt Date: 20131219
  Transmission Date: 20140711
  Serious: Yes (Hospitalization, Other)
  Sender: FDA-Public Use
  Company Number: IT-PFIZER INC-2013266421

PATIENT
  Age: 75 Year
  Sex: Male
  Weight: 66 kg

DRUGS (6)
  1. ARACYTIN [Suspect]
     Indication: MANTLE CELL LYMPHOMA
     Dosage: 500 MG/M2, CYCLIC
     Route: 042
     Dates: start: 20130722, end: 20130829
  2. MABTHERA [Suspect]
     Indication: MANTLE CELL LYMPHOMA
     Dosage: 375 MG/M2, CYCLIC
     Route: 042
     Dates: start: 20130722, end: 20130826
  3. LEVACT [Suspect]
     Indication: MANTLE CELL LYMPHOMA
     Dosage: 70 MG/M2, CYCLIC
     Route: 042
     Dates: start: 20130722, end: 20130828
  4. ALLOPURINOL TEVA [Concomitant]
     Indication: PROPHYLAXIS
     Dosage: 300 MG, UNK
     Route: 048
     Dates: start: 20130722, end: 20130910
  5. BACTRIM [Concomitant]
     Indication: ANTIBIOTIC PROPHYLAXIS
     Dosage: UNK
     Route: 048
     Dates: start: 20130722, end: 20130823
  6. ACICLOVIR ALMUS [Concomitant]
     Indication: ANTIVIRAL PROPHYLAXIS
     Dosage: 400 MG, UNK
     Route: 048
     Dates: start: 20130722, end: 20130910

REACTIONS (3)
  - Pancytopenia [Not Recovered/Not Resolved]
  - Erythema [Not Recovered/Not Resolved]
  - Candida infection [Unknown]
